FAERS Safety Report 8368092-5 (Version None)
Quarter: 2012Q2

REPORT INFORMATION
  Report Type: 
  Country: None (occurrence: None)
  Receive Date: 20120517
  Receipt Date: 20120508
  Transmission Date: 20120825
  Serious: Yes (Other)
  Sender: FDA-Public Use
  Company Number: US-PFIZER INC-2009250023

PATIENT
  Age: 41 Year
  Sex: Female

DRUGS (10)
  1. PACLITAXEL [Suspect]
     Indication: BREAST CANCER
     Dosage: 175 MG/M2 (299 MG), UNK
  2. FAMOTIDINE [Concomitant]
     Dosage: 20 MG, UNK
     Route: 042
  3. DIPHENHYDRAMINE [Concomitant]
     Dosage: 50 MG, UNK
     Route: 042
  4. DOXORUBICIN [Concomitant]
     Dosage: UNK
  5. DICHLORALPHENAZONE/ISOMETHEPTENE MUCATE/PARACETAMOL [Concomitant]
     Indication: MIGRAINE
     Dosage: 325 MG / 100 MG / 65 MG, 1-2 TABLETS EVERY 6 HOURS AS NEEDED
  6. CREMOPHOR EL [Concomitant]
  7. PEGFILGRASTIM [Concomitant]
     Dosage: UNK
  8. DEXAMETHASONE [Concomitant]
     Dosage: 20 MG, UNK
     Route: 048
  9. OMEPRAZOLE [Concomitant]
     Dosage: 20 MG, UNK
  10. CYCLOPHOSPHAMIDE [Concomitant]
     Dosage: UNK

REACTIONS (2)
  - HYPERSENSITIVITY [None]
  - CONVULSION [None]
